FAERS Safety Report 4739066-8 (Version None)
Quarter: 2005Q3

REPORT INFORMATION
  Report Type: 
  Country: None (occurrence: None)
  Receive Date: 20050810
  Receipt Date: 20050331
  Transmission Date: 20060218
  Serious: No
  Sender: FDA-Public Use
  Company Number: US-GLAXOSMITHKLINE-A0552117A

PATIENT
  Age: 52 Year
  Sex: Female

DRUGS (5)
  1. PAXIL [Suspect]
     Indication: DEPRESSION
     Dosage: 2TSP PER DAY
     Route: 048
     Dates: start: 20050326, end: 20050326
  2. SYNTHROID [Concomitant]
  3. CRESTOR [Concomitant]
  4. INSULIN [Concomitant]
  5. PRILOSEC [Concomitant]

REACTIONS (2)
  - ABNORMAL DREAMS [None]
  - PHARMACEUTICAL PRODUCT COMPLAINT [None]
